FAERS Safety Report 21556768 (Version 1)
Quarter: 2022Q4

REPORT INFORMATION
  Report Type: Spontaneous
  Country: US (occurrence: None)
  Receive Date: 20221104
  Receipt Date: 20221104
  Transmission Date: 20230113
  Serious: Yes (Other)
  Sender: FDA-Public Use
  Company Number: None

PATIENT
  Age: 46 Year
  Sex: Female
  Weight: 83.7 kg

DRUGS (11)
  1. BELBUCA [Suspect]
     Active Substance: BUPRENORPHINE HYDROCHLORIDE
     Indication: Pain
     Dosage: OTHER QUANTITY : 1 PATCH(ES);?FREQUENCY : TWICE A DAY;?
     Route: 061
     Dates: start: 20210625, end: 20220901
  2. GABAPENTIN [Concomitant]
     Active Substance: GABAPENTIN
  3. HYDROCODONE [Concomitant]
     Active Substance: HYDROCODONE
  4. TIZANIDINE [Concomitant]
     Active Substance: TIZANIDINE
  5. BACLOFEN [Concomitant]
     Active Substance: BACLOFEN
  6. DIAZEPAM [Concomitant]
     Active Substance: DIAZEPAM
  7. IBUPROFEN [Concomitant]
     Active Substance: IBUPROFEN
  8. LABETAOLOL [Concomitant]
  9. NEXIUM [Concomitant]
     Active Substance: ESOMEPRAZOLE MAGNESIUM
  10. ALLEGRA [Concomitant]
     Active Substance: FEXOFENADINE HYDROCHLORIDE
  11. BENADRYL [Concomitant]
     Active Substance: DIPHENHYDRAMINE HYDROCHLORIDE

REACTIONS (1)
  - Dental caries [None]

NARRATIVE: CASE EVENT DATE: 20220701
